FAERS Safety Report 6263857-8 (Version None)
Quarter: 2009Q3

REPORT INFORMATION
  Report Type: 
  Country: None (occurrence: None)
  Receive Date: 20090710
  Receipt Date: 20090326
  Transmission Date: 20100115
  Serious: No
  Sender: FDA-Public Use
  Company Number: US-BAYER-200913590NA

PATIENT
  Age: 33 Year
  Sex: Female

DRUGS (1)
  1. YAZ [Suspect]
     Indication: ACNE
     Route: 048
     Dates: start: 20081201

REACTIONS (2)
  - ACNE [None]
  - NO ADVERSE EVENT [None]
